FAERS Safety Report 17660990 (Version 1)
Quarter: 2020Q2

REPORT INFORMATION
  Report Type: Spontaneous
  Country: DE (occurrence: DE)
  Receive Date: 20200413
  Receipt Date: 20200413
  Transmission Date: 20200713
  Serious: Yes (Hospitalization)
  Sender: FDA-Public Use
  Company Number: DE-TEVA-2020-DE-1221602

PATIENT
  Age: 63 Year
  Sex: Male

DRUGS (8)
  1. CLONIDIN-RATIOPHARM 150 [Concomitant]
     Dosage: .5 DOSAGE FORMS DAILY; 150 UG, 0-0-0.5-0
     Route: 048
  2. NALOXONE W/OXYCODONE [Concomitant]
     Active Substance: NALOXONE HYDROCHLORIDE\OXYCODONE HYDROCHLORIDE
     Dosage: 10|20 MG, 2-1-2-0
     Route: 048
  3. PANTOPRAZOL [Concomitant]
     Active Substance: PANTOPRAZOLE SODIUM
     Dosage: 40 MILLIGRAM DAILY; 40 MG, 1-0-0-0
     Route: 048
  4. SALOFALK 1000MG [Concomitant]
     Dosage: 1000 MILLIGRAM DAILY; 1000 MG, 0-1-0-0
  5. CANDESARTAN. [Concomitant]
     Active Substance: CANDESARTAN
     Dosage: 8 MILLIGRAM DAILY; 8 MG, 0-0-1-0
     Route: 048
  6. PREGABALIN. [Concomitant]
     Active Substance: PREGABALIN
     Dosage: 600 MILLIGRAM DAILY; 200 MG, 1-1-1-0
     Route: 048
  7. IBUPROFEN. [Suspect]
     Active Substance: IBUPROFEN
     Dosage: NK MG, 4X
     Route: 048
  8. PREDNISOLON [Suspect]
     Active Substance: PREDNISOLONE
     Dosage: 7.5 MILLIGRAM DAILY; 7.5 MG, 1-0-0-0
     Route: 048

REACTIONS (7)
  - General physical health deterioration [Unknown]
  - Nausea [Unknown]
  - Tachycardia [Unknown]
  - Haematemesis [Unknown]
  - Vomiting [Unknown]
  - Decreased appetite [Unknown]
  - Fatigue [Unknown]
